FAERS Safety Report 8214884-2 (Version None)
Quarter: 2012Q1

REPORT INFORMATION
  Report Type: 
  Country: None (occurrence: None)
  Receive Date: 20120229
  Receipt Date: 20110510
  Transmission Date: 20120608
  Serious: Yes (Hospitalization)
  Sender: FDA-Public Use
  Company Number: PHHY2011US73437

PATIENT
  Age: 4 Year
  Sex: Male

DRUGS (5)
  1. PREDNISONE TAB [Concomitant]
  2. NEORAL [Suspect]
     Indication: RENAL TRANSPLANT
     Dosage: 50 MG, QD, ORAL
     Route: 048
     Dates: start: 20000422, end: 20000507
  3. NEORAL [Suspect]
     Indication: PROPHYLAXIS AGAINST TRANSPLANT REJECTION
     Dosage: 50 MG, QD, ORAL
     Route: 048
     Dates: start: 20000422, end: 20000507
  4. CYCLOSPORINE [Suspect]
     Indication: RENAL TRANSPLANT
     Dosage: 100 MG, QD, INJECTION NOS
     Dates: start: 19881031, end: 20000422
  5. IMURAN [Concomitant]

REACTIONS (3)
  - KIDNEY TRANSPLANT REJECTION [None]
  - PNEUMONIA [None]
  - DRUG INEFFECTIVE [None]
